FAERS Safety Report 6436911-5 (Version None)
Quarter: 2009Q4

REPORT INFORMATION
  Report Type: 
  Country: None (occurrence: None)
  Receive Date: 20091109
  Receipt Date: 20091026
  Transmission Date: 20100525
  Serious: Yes (Hospitalization, Disabling)
  Sender: FDA-Public Use
  Company Number: 420943

PATIENT
  Age: 75 Year
  Sex: Male

DRUGS (5)
  1. GENTAMICIN [Suspect]
  2. ARCOXIA [Suspect]
     Indication: OSTEOARTHRITIS
     Dosage: 60 MG
     Dates: end: 20040101
  3. (C0-TENIDONE) [Concomitant]
  4. (DETRUSITOL /01350202/) [Concomitant]
  5. IRBESARTAN [Concomitant]

REACTIONS (2)
  - ANAPHYLACTIC REACTION [None]
  - CEREBROVASCULAR ACCIDENT [None]
